FAERS Safety Report 8987566 (Version 2)
Quarter: 2014Q2

REPORT INFORMATION
  Report Type: Report from Study
  Country: FR (occurrence: FR)
  Receive Date: 20121227
  Receipt Date: 20140617
  Transmission Date: 20141212
  Serious: Yes (Hospitalization)
  Sender: FDA-Public Use
  Company Number: PHHO2012FR018473

PATIENT
  Sex: 0

DRUGS (5)
  1. RAD 666 / RAD 001A [Suspect]
     Indication: RENAL TRANSPLANT
     Dosage: 3 MG, QD
     Route: 002
     Dates: start: 20121204
  2. RAD 666 / RAD 001A [Suspect]
     Dosage: UNK
     Route: 048
  3. NEORAL [Suspect]
     Indication: RENAL TRANSPLANT
     Dosage: 120 MG, QD
     Route: 002
     Dates: start: 20121023, end: 20121213
  4. CELLCEPT [Concomitant]
     Indication: RENAL TRANSPLANT
     Dosage: 2 MG, QD
     Route: 002
     Dates: start: 20121023
  5. CORTANCYL [Concomitant]
     Dosage: 5 G, QD
     Dates: start: 20121030

REACTIONS (3)
  - Aphthous stomatitis [Recovered/Resolved]
  - Diarrhoea [Recovered/Resolved]
  - Toxicity to various agents [Not Recovered/Not Resolved]
